FAERS Safety Report 21336750 (Version 1)
Quarter: 2022Q3

REPORT INFORMATION
  Report Type: Spontaneous
  Country: GB (occurrence: GB)
  Receive Date: 20220915
  Receipt Date: 20220915
  Transmission Date: 20221027
  Serious: Yes (Other)
  Sender: FDA-Public Use
  Company Number: GB-ORGANON-O2209GBR000758

PATIENT
  Sex: Female

DRUGS (1)
  1. NEXPLANON [Suspect]
     Active Substance: ETONOGESTREL
     Dosage: 1 IMPLANT
     Route: 059
     Dates: end: 20220823

REACTIONS (8)
  - Neuropathy peripheral [Unknown]
  - Stress [Not Recovered/Not Resolved]
  - Fluid retention [Not Recovered/Not Resolved]
  - Menstruation delayed [Not Recovered/Not Resolved]
  - Pain in extremity [Not Recovered/Not Resolved]
  - Implant site swelling [Not Recovered/Not Resolved]
  - Implant site pruritus [Unknown]
  - Implant site warmth [Not Recovered/Not Resolved]

NARRATIVE: CASE EVENT DATE: 20220101
